FAERS Safety Report 4826462-3 (Version None)
Quarter: 2005Q4

REPORT INFORMATION
  Report Type: 
  Country: None (occurrence: None)
  Receive Date: 20051111
  Receipt Date: 20051109
  Transmission Date: 20060501
  Serious: Yes (Death, Other)
  Sender: FDA-Public Use
  Company Number: PHBS2005JP16493

PATIENT
  Age: 14 Year
  Sex: Female

DRUGS (4)
  1. METHOTREXATE [Concomitant]
     Indication: CORD BLOOD TRANSPLANT THERAPY
     Dates: start: 20031217
  2. GEMCITABINE [Concomitant]
  3. CYCLOSPORINE [Suspect]
     Indication: CORD BLOOD TRANSPLANT THERAPY
     Dosage: 3 MG/KG/D
     Route: 065
     Dates: start: 20031217
  4. CYCLOSPORINE [Suspect]
     Dosage: 3 MGH/KG/D
     Route: 065
     Dates: start: 20040128, end: 20040101

REACTIONS (7)
  - BLOOD STEM CELL TRANSPLANT FAILURE [None]
  - GRAFT VERSUS HOST DISEASE [None]
  - HISTIOCYTOSIS HAEMATOPHAGIC [None]
  - MALIGNANT NEOPLASM PROGRESSION [None]
  - PSEUDOMONAS INFECTION [None]
  - RESPIRATORY TRACT INFECTION [None]
  - TOXIC INDUCED ENCEPHALOPATHY [None]
